FAERS Safety Report 7758332-5 (Version None)
Quarter: 2011Q3

REPORT INFORMATION
  Report Type: 
  Country: None (occurrence: None)
  Receive Date: 20110825
  Receipt Date: 20110711
  Transmission Date: 20111222
  Serious: No
  Sender: FDA-Public Use
  Company Number: 332646

PATIENT
  Sex: Female

DRUGS (2)
  1. VICTOZA [Suspect]
     Indication: PRODUCT USED FOR UNKNOWN INDICATION
     Dosage: 1.2 MG, QD, SUBCUTANEOUS ; 1.8 QD, SUBCUTANEOUS
     Route: 058
  2. METFORMIN HCL [Concomitant]

REACTIONS (4)
  - INJECTION SITE PAIN [None]
  - BLOOD GLUCOSE INCREASED [None]
  - VOMITING [None]
  - NAUSEA [None]
